FAERS Safety Report 7418889-0 (Version None)
Quarter: 2011Q2

REPORT INFORMATION
  Report Type: 
  Country: None (occurrence: None)
  Receive Date: 20110415
  Receipt Date: 20110412
  Transmission Date: 20111010
  Serious: Yes (Other)
  Sender: FDA-Public Use
  Company Number: TR-ABBOTT-11P-161-0718631-00

PATIENT
  Age: 29 Year
  Sex: Male

DRUGS (2)
  1. KEPPRA [Concomitant]
     Indication: PRODUCT USED FOR UNKNOWN INDICATION
     Dates: start: 20080101
  2. VALPROATE SODIUM/VALPROIC ACID [Suspect]
     Indication: EPILEPSY
     Route: 048
     Dates: start: 20010101

REACTIONS (5)
  - PRODUCT QUALITY ISSUE [None]
  - SPEECH DISORDER [None]
  - HYPOAESTHESIA [None]
  - CONVULSION [None]
  - DRUG INEFFECTIVE [None]
